FAERS Safety Report 8510750-3 (Version None)
Quarter: 2012Q3

REPORT INFORMATION
  Report Type: 
  Country: None (occurrence: None)
  Receive Date: 20120716
  Receipt Date: 20120713
  Transmission Date: 20120928
  Serious: No
  Sender: FDA-Public Use
  Company Number: US-PFIZER INC-2012169718

PATIENT
  Sex: Female
  Weight: 57.143 kg

DRUGS (8)
  1. XANAX [Suspect]
     Dosage: UNK, DAILY
     Route: 048
  2. LEVOTHYROXINE [Concomitant]
     Indication: THYROID DISORDER
     Dosage: UNK, DAILY
     Dates: start: 20100101
  3. PRAVASTATIN [Concomitant]
     Dosage: UNK
  4. LYRICA [Suspect]
     Indication: CERVICOBRACHIAL SYNDROME
     Dosage: 50 MG, DAILY
     Dates: start: 20120712
  5. CALCIUM CARBONATE [Concomitant]
     Dosage: UNK, DAILY
  6. MULTI-VITAMINS [Concomitant]
     Dosage: UNK ,DAILY
  7. IBUPROFEN (ADVIL) [Concomitant]
     Indication: NEURALGIA
     Dosage: UNK, 2X/DAY
     Dates: start: 20100101
  8. ALENDRONATE SODIUM [Concomitant]
     Indication: OSTEOPOROSIS
     Dosage: UNK, DAILY

REACTIONS (4)
  - DIZZINESS [None]
  - SENSATION OF HEAVINESS [None]
  - MIGRAINE [None]
  - EYE DISORDER [None]
